FAERS Safety Report 8220144-6 (Version None)
Quarter: 2012Q1

REPORT INFORMATION
  Report Type: 
  Country: None (occurrence: None)
  Receive Date: 20120320
  Receipt Date: 20120306
  Transmission Date: 20120608
  Serious: Yes (Other)
  Sender: FDA-Public Use
  Company Number: US-ELI_LILLY_AND_COMPANY-US201203001859

PATIENT
  Sex: Female

DRUGS (2)
  1. HUMULIN N [Suspect]
     Indication: DIABETES MELLITUS
     Dosage: 90 U, EACH MORNING
     Dates: start: 20110101
  2. HUMULIN N [Suspect]
     Dosage: 30 U, EACH EVENING
     Dates: start: 20110101

REACTIONS (3)
  - BLINDNESS [None]
  - DRUG DOSE OMISSION [None]
  - EYE HAEMORRHAGE [None]
